FAERS Safety Report 6911522-3 (Version None)
Quarter: 2010Q3

REPORT INFORMATION
  Report Type: 
  Country: None (occurrence: None)
  Receive Date: 20100806
  Receipt Date: 20100727
  Transmission Date: 20110219
  Serious: Yes (Hospitalization, Other)
  Sender: FDA-Public Use
  Company Number: US-CELGENEUS-163-C5013-10072530

PATIENT
  Sex: Male
  Weight: 98.9 kg

DRUGS (17)
  1. LENALIDOMIDE [Suspect]
     Indication: PROSTATE CANCER
     Route: 048
     Dates: start: 20100419
  2. LENALIDOMIDE [Suspect]
     Route: 048
     Dates: start: 20100720, end: 20100726
  3. DOCETAXEL [Suspect]
     Indication: PROSTATE CANCER
     Route: 051
     Dates: start: 20100419, end: 20100419
  4. DOCETAXEL [Suspect]
     Route: 051
     Dates: start: 20100720, end: 20100720
  5. PREDNISONE [Suspect]
     Indication: PROSTATE CANCER
     Route: 065
     Dates: start: 20100419
  6. PREDNISONE [Suspect]
     Route: 065
     Dates: start: 20100720, end: 20100726
  7. ESOMEPRAZOLE MAGNESIUM [Concomitant]
     Route: 048
  8. ESCITALOPRAM [Concomitant]
     Indication: DEPRESSION
     Route: 048
  9. LISINOPRIL [Concomitant]
     Indication: HYPERTENSION
     Route: 048
     Dates: start: 20100722
  10. FUROSEMIDE [Concomitant]
     Route: 065
     Dates: start: 20100617
  11. SALICYLIC ACID [Concomitant]
     Indication: CARDIOVASCULAR EVENT PROPHYLAXIS
     Route: 048
     Dates: start: 20100717, end: 20100726
  12. MULTI-VITAMINS [Concomitant]
     Route: 048
  13. IBUPROFEN [Concomitant]
     Indication: PAIN
     Route: 048
  14. DEXAMETHASONE [Concomitant]
     Indication: PRODUCT USED FOR UNKNOWN INDICATION
     Route: 048
     Dates: start: 20100418
  15. FISH OIL [Concomitant]
     Route: 048
  16. SIMVASTATIN [Concomitant]
     Route: 048
  17. PEGFILGRASTIM [Concomitant]
     Indication: NEUTROPENIA
     Route: 058
     Dates: start: 20100721, end: 20100721

REACTIONS (9)
  - ANOXIA [None]
  - APHASIA [None]
  - ATRIAL FIBRILLATION [None]
  - DEHYDRATION [None]
  - HYPOTENSION [None]
  - PANCYTOPENIA [None]
  - RENAL INJURY [None]
  - SEPSIS [None]
  - TACHYCARDIA [None]
